FAERS Safety Report 10069939 (Version 1)
Quarter: 2014Q2

REPORT INFORMATION
  Report Type: Spontaneous
  Country: CH (occurrence: CH)
  Receive Date: 20140410
  Receipt Date: 20140410
  Transmission Date: 20141212
  Serious: Yes (Other)
  Sender: FDA-Public Use
  Company Number: CH-JNJFOC-20140401172

PATIENT
  Age: 24 Year
  Sex: Female

DRUGS (5)
  1. TOPAMAX [Suspect]
     Indication: DECREASED APPETITE
     Route: 048
  2. FLUCTINE [Suspect]
     Indication: DECREASED APPETITE
     Route: 048
  3. ANXIOLIT [Suspect]
     Indication: PRODUCT USED FOR UNKNOWN INDICATION
     Route: 048
  4. TRAMAL [Suspect]
     Indication: SYRINGOMYELIA
     Route: 048
     Dates: start: 2014
  5. ZALDIAR [Suspect]
     Indication: SYRINGOMYELIA
     Route: 065

REACTIONS (2)
  - Exposure during pregnancy [Unknown]
  - Off label use [Unknown]
